FAERS Safety Report 7548004-4 (Version None)
Quarter: 2011Q2

REPORT INFORMATION
  Report Type: 
  Country: None (occurrence: None)
  Receive Date: 20110608
  Receipt Date: 20110602
  Transmission Date: 20111010
  Serious: Yes (Other)
  Sender: FDA-Public Use
  Company Number: GB-ACCORD-009439

PATIENT
  Age: 60 Year
  Sex: Male

DRUGS (1)
  1. TOPIRAMATE [Suspect]
     Indication: EPILEPSY
     Dosage: 50.00 MG - 2.00 TIMES PER 1.0 DAY, ORAL
     Route: 048

REACTIONS (2)
  - GASTRECTOMY [None]
  - NEOPLASM MALIGNANT [None]
